FAERS Safety Report 4591953-X (Version None)
Quarter: 2005Q1

REPORT INFORMATION
  Report Type: 
  Country: None (occurrence: None)
  Receive Date: 20050222
  Receipt Date: 20050211
  Transmission Date: 20050727
  Serious: Yes (Hospitalization, Other)
  Sender: FDA-Public Use
  Company Number: US-2004-032920

PATIENT
  Age: 39 Year
  Sex: Female
  Weight: 78.5 kg

DRUGS (2)
  1. BETASERON [Suspect]
     Indication: MULTIPLE SCLEROSIS
     Dosage: SUBCUTANEOUS
     Route: 058
  2. ORAL CONTRACEPTIVE NOS (ORAL CONTRACEPTIVE  NOS) [Concomitant]

REACTIONS (3)
  - CELLULITIS [None]
  - HAEMOLYTIC URAEMIC SYNDROME [None]
  - RENAL FAILURE [None]
